FAERS Safety Report 5005140-4 (Version None)
Quarter: 2006Q2

REPORT INFORMATION
  Report Type: 
  Country: None (occurrence: None)
  Receive Date: 20060518
  Receipt Date: 20060223
  Transmission Date: 20061013
  Serious: Yes (Other)
  Sender: FDA-Public Use
  Company Number: US-AVENTIS-200611791US

PATIENT
  Age: 16 Year
  Sex: Female

DRUGS (2)
  1. KETEK [Suspect]
     Indication: UPPER RESPIRATORY TRACT INFECTION
     Route: 048
  2. ADVAIR DISKUS 100/50 [Concomitant]
     Indication: ASTHMA
     Dosage: DOSE: UNK

REACTIONS (2)
  - BLINDNESS TRANSIENT [None]
  - VISION BLURRED [None]
